FAERS Safety Report 6883373-X (Version None)
Quarter: 2010Q3

REPORT INFORMATION
  Report Type: 
  Country: None (occurrence: None)
  Receive Date: 20100727
  Receipt Date: 20080430
  Transmission Date: 20110219
  Serious: Yes (Hospitalization, Other)
  Sender: FDA-Public Use
  Company Number: US-PFIZER INC-2006150183

PATIENT
  Sex: Female
  Weight: 102.1 kg

DRUGS (6)
  1. CELEBREX [Suspect]
     Indication: OSTEOARTHRITIS
     Dates: start: 20020301
  2. CELEBREX [Suspect]
     Indication: PAIN
  3. BEXTRA [Suspect]
     Indication: OSTEOARTHRITIS
     Dates: start: 20040801
  4. BEXTRA [Suspect]
     Indication: PAIN
  5. VIOXX [Suspect]
     Indication: OSTEOARTHRITIS
     Route: 048
     Dates: start: 20040101, end: 20040101
  6. VIOXX [Suspect]
     Indication: PAIN

REACTIONS (1)
  - DEEP VEIN THROMBOSIS [None]
